FAERS Safety Report 23800171 (Version 1)
Quarter: 2024Q2

REPORT INFORMATION
  Report Type: Spontaneous
  Country: US (occurrence: None)
  Receive Date: 20240429
  Receipt Date: 20240429
  Transmission Date: 20240716
  Serious: Yes (Other)
  Sender: FDA-Public Use
  Company Number: None

PATIENT
  Age: 39 Year
  Sex: Female
  Weight: 126 kg

DRUGS (3)
  1. VITAMINS [Suspect]
     Active Substance: VITAMINS
     Dates: start: 20240429, end: 20240429
  2. SPRINTEC [Concomitant]
  3. ALLERTEC [Concomitant]

REACTIONS (8)
  - Back pain [None]
  - Dizziness [None]
  - Paraesthesia [None]
  - Pallor [None]
  - Nausea [None]
  - Vision blurred [None]
  - Brain fog [None]
  - Dysacusis [None]

NARRATIVE: CASE EVENT DATE: 20240429
